FAERS Safety Report 24341205 (Version 1)
Quarter: 2024Q3

REPORT INFORMATION
  Report Type: Spontaneous
  Country: PL (occurrence: PL)
  Receive Date: 20240919
  Receipt Date: 20240919
  Transmission Date: 20241017
  Serious: Yes (Hospitalization)
  Sender: PFIZER
  Company Number: PL-ROCHE-10000023713

PATIENT
  Age: 64 Year
  Sex: Male
  Weight: 85.4 kg

DRUGS (45)
  1. RITUXIMAB [Suspect]
     Active Substance: RITUXIMAB
     Indication: Non-Hodgkin^s lymphoma
     Dosage: 772.5 MG, EVERY 3 WEEKS
     Route: 042
     Dates: start: 20240611
  2. RITUXIMAB [Suspect]
     Active Substance: RITUXIMAB
     Indication: Diffuse large B-cell lymphoma
     Dosage: 765 MG
     Dates: start: 20240702
  3. DOXORUBICIN HYDROCHLORIDE [Suspect]
     Active Substance: DOXORUBICIN HYDROCHLORIDE
     Indication: Non-Hodgkin^s lymphoma
     Dosage: 103 MG, EVERY 3 WEEKS
     Route: 042
     Dates: start: 20240611
  4. DOXORUBICIN HYDROCHLORIDE [Suspect]
     Active Substance: DOXORUBICIN HYDROCHLORIDE
     Indication: Diffuse large B-cell lymphoma
     Dosage: 102 MG
     Dates: start: 20240702
  5. CYCLOPHOSPHAMIDE [Suspect]
     Active Substance: CYCLOPHOSPHAMIDE
     Indication: Non-Hodgkin^s lymphoma
     Dosage: 1545 MG, EVERY 3 WEEKS
     Route: 042
     Dates: start: 20240611
  6. CYCLOPHOSPHAMIDE [Suspect]
     Active Substance: CYCLOPHOSPHAMIDE
     Indication: Diffuse large B-cell lymphoma
     Dosage: 1530 MG
     Dates: start: 20240702
  7. PREDNISONE [Suspect]
     Active Substance: PREDNISONE
     Indication: Diffuse large B-cell lymphoma
     Dosage: 100 MG, EVERY 3 WEEKS
     Route: 048
     Dates: start: 20240606
  8. PREDNISONE [Suspect]
     Active Substance: PREDNISONE
     Dosage: UNK
     Dates: start: 20240702
  9. POLATUZUMAB VEDOTIN [Suspect]
     Active Substance: POLATUZUMAB VEDOTIN
     Indication: Non-Hodgkin^s lymphoma
     Dosage: 158.8 MG, EVERY 3 WEEKS
     Route: 042
     Dates: start: 20240612
  10. POLATUZUMAB VEDOTIN [Suspect]
     Active Substance: POLATUZUMAB VEDOTIN
     Indication: Diffuse large B-cell lymphoma
  11. METFORMIN [Concomitant]
     Active Substance: METFORMIN HYDROCHLORIDE
     Indication: Diabetes mellitus
     Dosage: UNK MG
     Dates: start: 20240702, end: 20240704
  12. MAGNESIUM [Concomitant]
     Active Substance: MAGNESIUM
     Dosage: UNK
     Dates: start: 20240702, end: 20240704
  13. HEPARINUM [HEPARIN] [Concomitant]
     Dosage: UNK
     Dates: start: 20240702, end: 20240704
  14. AMARYL [Concomitant]
     Active Substance: GLIMEPIRIDE
     Indication: Diabetes mellitus
     Dosage: 2 MG, 1X/DAY
     Route: 048
     Dates: start: 2009, end: 20240619
  15. LERCANIDIPINUM [Concomitant]
     Dosage: UNK
     Dates: start: 20240702, end: 20240704
  16. LONAMO [SITAGLIPTIN] [Concomitant]
     Dosage: 100 MG, 1X/DAY
     Route: 048
     Dates: start: 20240620
  17. ENOXAPARIN SODIUM [Concomitant]
     Active Substance: ENOXAPARIN SODIUM
     Indication: Thrombosis prophylaxis
     Dosage: 40 MG, 1X/DAY
     Dates: start: 20240605
  18. ENOXAPARIN SODIUM [Concomitant]
     Active Substance: ENOXAPARIN SODIUM
     Indication: Prophylaxis
  19. FILGRASTIMUM [Concomitant]
     Indication: Prophylaxis
     Dosage: UNK
  20. FILGRASTIMUM [Concomitant]
     Dosage: UNK
     Dates: start: 20240702, end: 20240704
  21. FILGRASTIMUM [Concomitant]
     Dosage: DRUG DOSE FIRST ADMINISTERED IS 1 AMPULEGIVEN FOR PROPHYLAXIS IS YES
  22. ATOSSA [ONDANSETRON] [Concomitant]
     Indication: Premedication
     Dosage: 8 MG, AS NEEDED
     Route: 042
     Dates: start: 20240611, end: 20240611
  23. ATORVASTATIN CALCIUM [Concomitant]
     Active Substance: ATORVASTATIN CALCIUM
     Indication: Myocardial ischaemia
     Dosage: 10 MG, 1X/DAY
     Route: 048
     Dates: start: 2024
  24. ASPIRIN [Concomitant]
     Active Substance: ASPIRIN
     Dosage: 75 MG, 1X/DAY
     Route: 048
     Dates: start: 2009
  25. LERCANIDIPINE [Concomitant]
     Active Substance: LERCANIDIPINE
     Route: 048
     Dates: start: 2018
  26. DAPAGLIFLOZIN [Concomitant]
     Active Substance: DAPAGLIFLOZIN
     Indication: Diabetes mellitus
     Dosage: 10 MG, 1X/DAY
     Route: 048
     Dates: start: 2018, end: 20240619
  27. OMEPRAZOLE [Concomitant]
     Active Substance: OMEPRAZOLE
     Indication: Gastritis prophylaxis
     Dosage: 40 MG, 1X/DAY
     Route: 048
     Dates: start: 20240611, end: 20240615
  28. OMEPRAZOLE [Concomitant]
     Active Substance: OMEPRAZOLE
     Indication: Prophylaxis
  29. ATORVASTATIN [Concomitant]
     Active Substance: ATORVASTATIN
     Dates: start: 20240702, end: 20240704
  30. EBIVOL [Concomitant]
     Indication: Myocardial ischaemia
     Dosage: 5 MG, 1X/DAY
     Route: 048
     Dates: start: 2009
  31. PANTOPRAZOLE [Concomitant]
     Active Substance: PANTOPRAZOLE
     Dosage: UNK
     Dates: start: 20240702, end: 20240704
  32. NEBIVOLOL [Concomitant]
     Active Substance: NEBIVOLOL
     Dosage: UNK
     Dates: start: 20240702, end: 20240704
  33. ACETAMINOPHEN [Concomitant]
     Active Substance: ACETAMINOPHEN
     Dosage: 1000 MG
  34. ACETAMINOPHEN [Concomitant]
     Active Substance: ACETAMINOPHEN
     Dosage: 1000 MG, AS NEEDED
     Route: 048
     Dates: start: 20240611, end: 20240828
  35. POTASSIUM [Concomitant]
     Active Substance: POTASSIUM
     Dosage: UNK
  36. ASPIRIN [Concomitant]
     Active Substance: ASPIRIN
     Dosage: UNK
     Dates: start: 20240702, end: 20240704
  37. ASPIRIN [Concomitant]
     Active Substance: ASPIRIN
     Dosage: 75 MG
     Dates: start: 2009
  38. DEXAMETHASONE [Concomitant]
     Active Substance: DEXAMETHASONE
     Indication: Premedication
     Dosage: 8 MG, AS NEEDED
     Route: 048
     Dates: start: 20240611, end: 20240611
  39. DEXAMETHASONE [Concomitant]
     Active Substance: DEXAMETHASONE
     Dosage: 8 MG, AS NEEDED
     Route: 048
     Dates: start: 20240702, end: 20240702
  40. CLEMASTINUM [CLEMASTINE] [Concomitant]
     Indication: Premedication
     Dosage: 2 MG
     Dates: start: 20240611, end: 20240828
  41. HYDROCHLOROTHIAZIDE [Concomitant]
     Active Substance: HYDROCHLOROTHIAZIDE
     Dosage: UNK
     Dates: start: 20240702, end: 20240704
  42. METFORMIN HYDROCHLORIDE [Concomitant]
     Active Substance: METFORMIN HYDROCHLORIDE
     Indication: Diabetes mellitus
     Dosage: FREQ:.5 D;
     Route: 048
     Dates: start: 2018
  43. ALLOPURINOL [Concomitant]
     Active Substance: ALLOPURINOL
     Indication: Prophylaxis
     Dosage: UNK
     Dates: start: 20240702, end: 20240704
  44. ALLOPURINOL [Concomitant]
     Active Substance: ALLOPURINOL
     Dosage: FREQ:.5 D;GIVEN FOR PROPHYLAXIS IS YES
     Dates: start: 20240611
  45. GLOFITAMAB [Concomitant]
     Active Substance: GLOFITAMAB
     Dosage: 2.5 UNK
     Dates: start: 20240709

REACTIONS (1)
  - Anaemia [Recovered/Resolved]

NARRATIVE: CASE EVENT DATE: 20240702
